FAERS Safety Report 5966665-8 (Version None)
Quarter: 2008Q4

REPORT INFORMATION
  Report Type: 
  Country: None (occurrence: None)
  Receive Date: 20081125
  Receipt Date: 20081027
  Transmission Date: 20090506
  Serious: No
  Sender: FDA-Public Use
  Company Number: US-AMGEN-KDL315703

PATIENT
  Sex: Male

DRUGS (3)
  1. ENBREL [Suspect]
     Indication: PSORIATIC ARTHROPATHY
     Route: 058
     Dates: start: 20040429
  2. ENBREL [Suspect]
     Indication: PSORIASIS
  3. SORIATANE [Concomitant]

REACTIONS (1)
  - PSORIATIC ARTHROPATHY [None]
